FAERS Safety Report 9264965 (Version 1)
Quarter: 2013Q2

REPORT INFORMATION
  Report Type: Spontaneous
  Country: US (occurrence: None)
  Receive Date: 20130426
  Receipt Date: 20130426
  Transmission Date: 20140414
  Serious: Yes (Other)
  Sender: FDA-Public Use
  Company Number: JPI-P-031288

PATIENT
  Age: 47 Year
  Sex: Male

DRUGS (1)
  1. XYREM [Suspect]
     Indication: NARCOLEPSY
     Dosage: 3GM (1.5GM, 2 IN 1D), ORAL
     Route: 048
     Dates: start: 20090625

REACTIONS (1)
  - Incoherent [None]
